FAERS Safety Report 9041078 (Version 1)
Quarter: 2013Q1

REPORT INFORMATION
  Report Type: Spontaneous
  Country: US (occurrence: None)
  Receive Date: 20130124
  Receipt Date: 20130124
  Transmission Date: 20140127
  Serious: Yes (Other)
  Sender: FDA-Public Use
  Company Number: None

PATIENT
  Age: 13 Year
  Sex: Male
  Weight: 54.43 kg

DRUGS (1)
  1. TAMIFLU [Suspect]
     Indication: INFLUENZA
     Dosage: 75MG BID X 5 DAYS PO
     Route: 048
     Dates: start: 20130106

REACTIONS (5)
  - Hyperhidrosis [None]
  - Cold sweat [None]
  - Blood pressure diastolic decreased [None]
  - Cold sweat [None]
  - Heart rate decreased [None]
